FAERS Safety Report 5115490-9 (Version None)
Quarter: 2006Q3

REPORT INFORMATION
  Report Type: 
  Country: None (occurrence: None)
  Receive Date: 20060927
  Receipt Date: 20060504
  Transmission Date: 20061208
  Serious: Yes (Other)
  Sender: FDA-Public Use
  Company Number: PHEH2006US05865

PATIENT
  Age: 60 Year
  Sex: Male

DRUGS (6)
  1. ZOMETA [Suspect]
     Indication: MULTIPLE MYELOMA
     Dosage: 4 MG, UNK
     Dates: start: 20051101
  2. PAMIDRONATE DISODIUM [Suspect]
     Indication: MULTIPLE MYELOMA
     Dosage: 90MG  Q4WKS
     Dates: start: 19981101, end: 20050901
  3. DECADRON #1 [Concomitant]
     Indication: MULTIPLE MYELOMA
     Dosage: 20 MG QD X 4 EVERY 8 DAYS
     Dates: start: 19981101, end: 19990201
  4. VINCRISTINE + ADRIAMYCIN + DEXAMETHASONE [Concomitant]
     Dates: start: 20050801, end: 20051001
  5. INTERFERON ALFA [Concomitant]
     Dates: start: 20000601, end: 20000701
  6. THALIDOMIDE [Concomitant]
     Dates: start: 20050801, end: 20051101

REACTIONS (4)
  - ARTHRALGIA [None]
  - LUMBAR SPINAL STENOSIS [None]
  - OSTEONECROSIS [None]
  - RADICULOPATHY [None]
